FAERS Safety Report 20517293 (Version 1)
Quarter: 2022Q1

REPORT INFORMATION
  Report Type: Spontaneous
  Country: US (occurrence: US)
  Receive Date: 20220225
  Receipt Date: 20220225
  Transmission Date: 20220423
  Serious: No
  Sender: FDA-Public Use
  Company Number: US-RECORDATI RARE DISEASE INC.-2021005061

PATIENT
  Sex: Female

DRUGS (3)
  1. DESOXYN [Suspect]
     Active Substance: METHAMPHETAMINE HYDROCHLORIDE
     Indication: Porphyria acute
     Dosage: 5MG FOUR PILLS FOUR TIMES A DAY
     Route: 048
  2. DESOXYN [Suspect]
     Active Substance: METHAMPHETAMINE HYDROCHLORIDE
     Indication: Attention deficit hyperactivity disorder
  3. METHAMPHETAMINE HYDROCHLORIDE [Concomitant]
     Active Substance: METHAMPHETAMINE HYDROCHLORIDE
     Indication: Product used for unknown indication
     Dosage: UNK UNK, UNK
     Route: 065

REACTIONS (4)
  - Malaise [Not Recovered/Not Resolved]
  - Therapy interrupted [Not Recovered/Not Resolved]
  - Product availability issue [Unknown]
  - Off label use [Unknown]
